FAERS Safety Report 20200631 (Version 1)
Quarter: 2021Q4

REPORT INFORMATION
  Report Type: Spontaneous
  Country: US (occurrence: None)
  Receive Date: 20211217
  Receipt Date: 20211217
  Transmission Date: 20220303
  Serious: No
  Sender: FDA-Public Use
  Company Number: None

PATIENT
  Sex: Female

DRUGS (2)
  1. OCTREOTIDE [Suspect]
     Active Substance: OCTREOTIDE
     Indication: Acromegaly
     Dosage: ONCE DAILY FOR 3 WEEKS AND THEN IF TOLERATED MOVE TO TWICE DAILY DOSING.;
     Route: 058
     Dates: start: 202109, end: 202112
  2. OCTREOTIDE [Suspect]
     Active Substance: OCTREOTIDE
     Indication: Gigantism

REACTIONS (1)
  - Blindness [None]
